FAERS Safety Report 8617071-9 (Version None)
Quarter: 2012Q3

REPORT INFORMATION
  Report Type: 
  Country: None (occurrence: None)
  Receive Date: 20120823
  Receipt Date: 20120814
  Transmission Date: 20120928
  Serious: No
  Sender: FDA-Public Use
  Company Number: US-009507513-1208USA007021

PATIENT

DRUGS (2)
  1. PROPECIA [Suspect]
     Indication: ANDROGENETIC ALOPECIA
     Dosage: 1 DF, QD
     Route: 048
     Dates: start: 20090301
  2. LIPITOR [Concomitant]

REACTIONS (4)
  - ERECTILE DYSFUNCTION [None]
  - SLEEP DISORDER [None]
  - DEPRESSION [None]
  - ANXIETY [None]
